FAERS Safety Report 18050325 (Version 1)
Quarter: 2020Q3

REPORT INFORMATION
  Report Type: Report from Study
  Country: JP (occurrence: JP)
  Receive Date: 20200721
  Receipt Date: 20200721
  Transmission Date: 20201103
  Serious: Yes (Hospitalization)
  Sender: FDA-Public Use
  Company Number: JP-ELI_LILLY_AND_COMPANY-JP201909007409

PATIENT
  Age: 62 Year
  Sex: Female

DRUGS (2)
  1. METOLATE [Concomitant]
     Active Substance: METHOTREXATE
     Route: 048
  2. OLUMIANT [Suspect]
     Active Substance: BARICITINIB
     Indication: RHEUMATOID ARTHRITIS
     Dosage: UNK
     Route: 048
     Dates: start: 20190809

REACTIONS (9)
  - Blister [Unknown]
  - Back pain [Recovered/Resolved]
  - Pain in extremity [Recovering/Resolving]
  - Neck pain [Recovered/Resolved]
  - Cellulitis [Not Recovered/Not Resolved]
  - Purulence [Unknown]
  - Arthralgia [Recovering/Resolving]
  - Cough [Unknown]
  - Peripheral swelling [Not Recovered/Not Resolved]

NARRATIVE: CASE EVENT DATE: 202004
